FAERS Safety Report 8543746-6 (Version None)
Quarter: 2012Q3

REPORT INFORMATION
  Report Type: 
  Country: None (occurrence: None)
  Receive Date: 20120727
  Receipt Date: 20120622
  Transmission Date: 20120928
  Serious: Yes (Death, Life-Threatening)
  Sender: FDA-Public Use
  Company Number: IT-ASTRAZENECA-2012SE51583

PATIENT
  Age: 14780 Day
  Sex: Female

DRUGS (11)
  1. FOSCAVIR [Suspect]
     Indication: CYTOMEGALOVIRUS INFECTION
     Dosage: 4 G CYCLES
     Route: 042
     Dates: start: 20120528, end: 20120605
  2. MYFORTIC [Concomitant]
  3. LEVOFLOXACIN [Concomitant]
  4. ANTI-THYMOCYTE GLOBULIN NOS [Concomitant]
  5. RAPAMUNE [Concomitant]
  6. TREOSULFANO [Concomitant]
  7. FLUDARABINE PHOSPHATE [Concomitant]
     Dosage: 30 MG/SQUAREMETER
  8. MABTHERA [Concomitant]
     Dosage: 375 MG/SQUAREMETER
  9. METHYLPREDNISOLONE [Concomitant]
  10. BACTRIM [Concomitant]
  11. VFEND [Concomitant]

REACTIONS (4)
  - MULTI-ORGAN FAILURE [None]
  - DEATH [None]
  - RENAL FAILURE ACUTE [None]
  - SEPTIC SHOCK [None]
